FAERS Safety Report 5825550-2 (Version None)
Quarter: 2008Q3

REPORT INFORMATION
  Report Type: 
  Country: None (occurrence: None)
  Receive Date: 20080725
  Receipt Date: 20080725
  Transmission Date: 20090109
  Serious: No
  Sender: FDA-Public Use
  Company Number: None

PATIENT
  Age: 43 Year
  Sex: Female
  Weight: 58.9676 kg

DRUGS (3)
  1. BUPROPION HCL [Suspect]
     Indication: ATTENTION DEFICIT/HYPERACTIVITY DISORDER
     Dosage: 300MG PER DAY PO
     Route: 048
     Dates: start: 20080107, end: 20080130
  2. BUPROPION HCL [Suspect]
     Indication: DEPRESSION
     Dosage: 300MG PER DAY PO
     Route: 048
     Dates: start: 20080107, end: 20080130
  3. BUPROPION HCL [Suspect]
     Dosage: 300 PER DAY PO
     Route: 048
     Dates: start: 20080720, end: 20080724

REACTIONS (5)
  - DEPRESSION [None]
  - DIZZINESS [None]
  - HEADACHE [None]
  - NAUSEA [None]
  - PHARMACEUTICAL PRODUCT COMPLAINT [None]
